FAERS Safety Report 5461005-5 (Version None)
Quarter: 2007Q3

REPORT INFORMATION
  Report Type: 
  Country: None (occurrence: None)
  Receive Date: 20070823
  Receipt Date: 20060725
  Transmission Date: 20080115
  Serious: Yes (Other)
  Sender: FDA-Public Use
  Company Number: GXBR2006US01516

PATIENT
  Age: 57 Year
  Sex: Female

DRUGS (3)
  1. LISINOPRIL [Suspect]
     Indication: HYPERTENSION
     Dosage: 10MG QD ORAL
     Route: 048
     Dates: start: 20060712, end: 20060720
  2. HYDROCHLOROTHIAZIDE [Concomitant]
  3. ESTRADIOL [Concomitant]

REACTIONS (1)
  - ANGIOEDEMA [None]
